FAERS Safety Report 8172367-2 (Version None)
Quarter: 2012Q1

REPORT INFORMATION
  Report Type: 
  Country: None (occurrence: None)
  Receive Date: 20120229
  Receipt Date: 20090603
  Transmission Date: 20120608
  Serious: No
  Sender: FDA-Public Use
  Company Number: 2009BI017425

PATIENT
  Age: 58 Year
  Sex: Male

DRUGS (1)
  1. TYSABRI [Suspect]
     Indication: MULTIPLE SCLEROSIS
     Route: 042
     Dates: start: 20080911

REACTIONS (9)
  - FALL [None]
  - ASTHENIA [None]
  - MUSCLE SPASMS [None]
  - SLUGGISHNESS [None]
  - GAIT DISTURBANCE [None]
  - BALANCE DISORDER [None]
  - SCRATCH [None]
  - MUSCULOSKELETAL STIFFNESS [None]
  - PAIN IN EXTREMITY [None]
